FAERS Safety Report 8063924-2 (Version None)
Quarter: 2012Q1

REPORT INFORMATION
  Report Type: 
  Country: None (occurrence: None)
  Receive Date: 20120123
  Receipt Date: 20120117
  Transmission Date: 20120608
  Serious: Yes (Other)
  Sender: FDA-Public Use
  Company Number: BR-PFIZER INC-2012013798

PATIENT
  Age: 61 Year
  Sex: Male

DRUGS (2)
  1. EFFEXOR XR [Suspect]
     Indication: BIPOLAR DISORDER
     Dosage: 150 MG, 1X/DAY (1 CAPSULE DAILY)
     Route: 048
     Dates: start: 19950921
  2. EFFEXOR XR [Suspect]
     Indication: PANIC DISORDER

REACTIONS (2)
  - INFARCTION [None]
  - FEELING ABNORMAL [None]
